FAERS Safety Report 23981787 (Version 1)
Quarter: 2024Q2

REPORT INFORMATION
  Report Type: Spontaneous
  Country: US (occurrence: None)
  Receive Date: 20240615
  Receipt Date: 20240615
  Transmission Date: 20240716
  Serious: Yes (Other)
  Sender: FDA-Public Use
  Company Number: None

PATIENT
  Age: 94 Year
  Sex: Female
  Weight: 81.9 kg

DRUGS (14)
  1. CEPHALEXIN [Suspect]
     Active Substance: CEPHALEXIN
     Indication: Localised infection
     Dosage: OTHER QUANTITY : 30 CAPSULE(S);?FREQUENCY : 3 TIMES A DAY;?
     Route: 048
     Dates: start: 20240612, end: 20240613
  2. Pantoprozole [Concomitant]
  3. CELEBREX [Concomitant]
     Active Substance: CELECOXIB
  4. CLOPIDOGREL [Concomitant]
  5. LEXAPRO [Concomitant]
     Active Substance: ESCITALOPRAM OXALATE
  6. Albuterol [Concomitant]
  7. LEVETIRACETAM [Concomitant]
  8. MAGNESIUM [Concomitant]
  9. POTASSIUM [Concomitant]
  10. MUCINEX [Concomitant]
  11. FEXOFENADINE [Concomitant]
  12. VITAMIN D3 [Concomitant]
     Active Substance: CHOLECALCIFEROL
  13. Aspirin [Concomitant]
  14. JANUVIA [Concomitant]
     Active Substance: SITAGLIPTIN PHOSPHATE

REACTIONS (10)
  - Chills [None]
  - Dyspnoea [None]
  - Asthenia [None]
  - Gait disturbance [None]
  - Walking aid user [None]
  - Ligament sprain [None]
  - Weight bearing difficulty [None]
  - Bowel movement irregularity [None]
  - Spinal compression fracture [None]
  - General physical health deterioration [None]

NARRATIVE: CASE EVENT DATE: 20240613
